FAERS Safety Report 4945959-9 (Version None)
Quarter: 2006Q1

REPORT INFORMATION
  Report Type: 
  Country: None (occurrence: None)
  Receive Date: 20060117
  Receipt Date: 20041202
  Transmission Date: 20060701
  Serious: No
  Sender: FDA-Public Use
  Company Number: FEI2004-1581

PATIENT
  Age: 27 Year
  Sex: Female
  Weight: 91.6266 kg

DRUGS (1)
  1. INTRAUTERINE COPPER CONTRACEPTIVE [Suspect]
     Indication: CONTRACEPTION
     Dosage: INTRA-UTERINE
     Route: 067
     Dates: start: 20041014, end: 20041210

REACTIONS (6)
  - ABDOMINAL PAIN [None]
  - INFECTION [None]
  - INTRA-UTERINE CONTRACEPTIVE DEVICE EXPELLED [None]
  - IUCD COMPLICATION [None]
  - UTERINE PERFORATION [None]
  - VAGINAL HAEMORRHAGE [None]
